FAERS Safety Report 5196105-0 (Version None)
Quarter: 2006Q4

REPORT INFORMATION
  Report Type: 
  Country: None (occurrence: None)
  Receive Date: 20061226
  Receipt Date: 20061212
  Transmission Date: 20070319
  Serious: Yes (Life-Threatening)
  Sender: FDA-Public Use
  Company Number: NLWYE808312DEC06

PATIENT
  Age: 32 Year
  Sex: Male

DRUGS (2)
  1. EFFEXOR XR [Suspect]
     Dosage: 37.5 MG
     Dates: start: 20061001, end: 20061014
  2. HALDOL SOLUTAB [Suspect]
     Indication: PSYCHOTIC DISORDER
     Dosage: 2 MG 2X PER 1 DAY
     Dates: start: 20060430, end: 20061030

REACTIONS (2)
  - DRUG INTERACTION [None]
  - SUICIDAL IDEATION [None]
